APPROVED DRUG PRODUCT: PREGABALIN
Active Ingredient: PREGABALIN
Strength: 100MG
Dosage Form/Route: CAPSULE;ORAL
Application: A213423 | Product #004 | TE Code: AB
Applicant: CREEKWOOD PHARMACEUTICALS LLC
Approved: Mar 23, 2020 | RLD: No | RS: No | Type: RX